FAERS Safety Report 21036241 (Version 2)
Quarter: 2022Q3

REPORT INFORMATION
  Report Type: Report from Study
  Country: BE (occurrence: BE)
  Receive Date: 20220701
  Receipt Date: 20220822
  Transmission Date: 20221027
  Serious: Yes (Hospitalization)
  Sender: FDA-Public Use
  Company Number: BE-TAKEDA-2021TUS033397

PATIENT
  Age: 72 Year
  Sex: Female

DRUGS (12)
  1. MOBOCERTINIB [Suspect]
     Active Substance: MOBOCERTINIB
     Indication: Non-small cell lung cancer
     Dosage: 160 MILLIGRAM
     Route: 048
     Dates: start: 20201211, end: 20210124
  2. MOBOCERTINIB [Suspect]
     Active Substance: MOBOCERTINIB
     Dosage: 120 MILLIGRAM
     Route: 048
     Dates: start: 20210208, end: 20210531
  3. MOBOCERTINIB [Suspect]
     Active Substance: MOBOCERTINIB
     Dosage: 80 MILLIGRAM
     Route: 048
     Dates: start: 20210601, end: 20210617
  4. DAFALGAN [Concomitant]
     Active Substance: ACETAMINOPHEN
     Indication: Pelvic pain
     Dosage: 1 GRAM, TID
     Route: 048
     Dates: start: 20201112
  5. ALIZAPRIDE HYDROCHLORIDE [Concomitant]
     Active Substance: ALIZAPRIDE HYDROCHLORIDE
     Indication: Nausea
     Dosage: 50 MILLIGRAM, TID
     Route: 048
     Dates: start: 20201112
  6. MOVICOL [Concomitant]
     Active Substance: POLYETHYLENE GLYCOL 3350\POTASSIUM CHLORIDE\SODIUM BICARBONATE\SODIUM CHLORIDE
     Indication: Constipation
     Dosage: UNK, QD
     Route: 048
     Dates: start: 202011
  7. Pantomed [Concomitant]
     Indication: Dyspepsia
     Dosage: 20 MILLIGRAM, QD
     Route: 048
     Dates: start: 20210326
  8. LYRICA [Concomitant]
     Active Substance: PREGABALIN
     Indication: Depression
     Dosage: 50 MILLIGRAM, BID
     Route: 048
     Dates: start: 20210326
  9. LOPERAMIDE [Concomitant]
     Active Substance: LOPERAMIDE
     Indication: Diarrhoea
     Dosage: 2 MILLIGRAM
     Route: 048
     Dates: start: 20201213
  10. EDOXABAN TOSYLATE [Concomitant]
     Active Substance: EDOXABAN TOSYLATE
     Indication: Thrombosis prophylaxis
     Dosage: 60 MILLIGRAM, QD
     Route: 048
     Dates: start: 20201225
  11. Soparyx [Concomitant]
     Indication: Decreased appetite
     Dosage: UNK UNK, QD
     Route: 048
     Dates: start: 20210602
  12. KCL [Concomitant]
     Active Substance: POTASSIUM CHLORIDE
     Indication: Hypokalaemia
     Dosage: 40 MILLIEQUIVALENT, QD
     Route: 042
     Dates: start: 20210525, end: 20210525

REACTIONS (3)
  - Vomiting [Not Recovered/Not Resolved]
  - General physical health deterioration [Recovered/Resolved]
  - Hypokalaemia [Not Recovered/Not Resolved]

NARRATIVE: CASE EVENT DATE: 20210525
